FAERS Safety Report 9123843 (Version 2)
Quarter: 2013Q1

REPORT INFORMATION
  Report Type: Spontaneous
  Country: US (occurrence: US)
  Receive Date: 20130115
  Receipt Date: 20130327
  Transmission Date: 20140127
  Serious: Yes (Hospitalization, Other)
  Sender: FDA-Public Use
  Company Number: US-PFIZER INC-2012316979

PATIENT
  Age: 66 Year
  Sex: Male

DRUGS (17)
  1. REVATIO [Suspect]
     Indication: PULMONARY HYPERTENSION
     Dosage: 20 MG, 3X/DAY
     Route: 048
     Dates: start: 20110204
  2. COLCHICINE [Concomitant]
     Dosage: 0.6 MG, 1X/DAY
     Route: 048
     Dates: start: 20121201
  3. HYTRIN [Concomitant]
     Dosage: 1 MG, 1X/DAY
     Route: 048
     Dates: start: 20121201
  4. LASIX [Concomitant]
     Dosage: 80 MG, 2X/DAY
     Route: 048
     Dates: start: 20121201
  5. PRILOSEC [Concomitant]
     Dosage: 20 MG, 1X/DAY
     Route: 048
     Dates: start: 20120621
  6. VENTOLIN [Concomitant]
     Dosage: 2.5 MG /3 ML (0.083 %) EVERY 6 HOURS PRN
     Dates: start: 20120316
  7. PROVENTIL [Concomitant]
     Dosage: 2 PUFF INHALATION EVERY 6 HOURS PRN
     Route: 055
     Dates: start: 20120316
  8. ATROVENT [Concomitant]
     Dosage: 0.02 % 0.5 MG, EVERY 4 HOURS RESP
     Dates: start: 20120316
  9. SPIRONOLACTONE [Concomitant]
     Dosage: 50 MG, 1X/DAY
     Route: 048
     Dates: start: 20120120
  10. ULTRACET [Concomitant]
     Dosage: 37.5MG/325MG, 1-2 TAB, EVERY 6HOURS PRN
     Route: 048
  11. N-ACETYLCYSTEINE [Concomitant]
     Dosage: 600 MG, 3X/DAY
     Route: 048
  12. JANUVIA [Concomitant]
     Dosage: 50 MG, 1X/DAY
     Route: 048
  13. LOPID [Concomitant]
     Dosage: 600 MG, 2 TIMES DAILY WITH MEALS
     Route: 048
  14. BAYER CHILDREN^S ASPIRIN [Concomitant]
     Dosage: 81 MG, 1X/DAY
     Route: 048
  15. OMEPRAZOLE [Concomitant]
     Dosage: 20 MG, UNK
     Route: 048
  16. IPRATROPIUM [Concomitant]
  17. VESICARE [Concomitant]
     Dosage: 5 MG, 1X/DAY
     Route: 048

REACTIONS (3)
  - Cardiac failure congestive [Unknown]
  - Dyspnoea exertional [Unknown]
  - Fluid retention [Unknown]
